FAERS Safety Report 19856217 (Version 1)
Quarter: 2021Q3

REPORT INFORMATION
  Report Type: Report from Study
  Country: IT (occurrence: IT)
  Receive Date: 20210920
  Receipt Date: 20210920
  Transmission Date: 20211014
  Serious: Yes (Other)
  Sender: FDA-Public Use
  Company Number: IT-TEVA-2021-IT-1953782

PATIENT
  Age: 11 Year
  Sex: Male

DRUGS (8)
  1. ROCURONIUM BROMIDE. [Suspect]
     Active Substance: ROCURONIUM BROMIDE
     Indication: APPENDICECTOMY
     Route: 065
     Dates: start: 20210802, end: 20210802
  2. BRIDION [Suspect]
     Active Substance: SUGAMMADEX
     Indication: APPENDICECTOMY
     Route: 065
     Dates: start: 20210802, end: 20210802
  3. PARACETAMOL [Suspect]
     Active Substance: ACETAMINOPHEN
     Indication: APPENDICECTOMY
     Dosage: 1000 MG
     Route: 065
     Dates: start: 20210802, end: 20210802
  4. CEFTRIAXONE. [Suspect]
     Active Substance: CEFTRIAXONE
     Indication: APPENDICECTOMY
     Route: 065
     Dates: start: 20210802, end: 20210802
  5. DIPRIVAN [Suspect]
     Active Substance: PROPOFOL
     Indication: APPENDICECTOMY
     Route: 042
     Dates: start: 20210802, end: 20210802
  6. MIDAZOLAM. [Suspect]
     Active Substance: MIDAZOLAM
     Indication: APPENDICECTOMY
     Route: 042
     Dates: start: 20210802, end: 20210802
  7. FENTANEST [FENTANYL CITRATE] [Suspect]
     Active Substance: FENTANYL CITRATE
     Indication: APPENDICECTOMY
     Route: 042
     Dates: start: 20210802, end: 20210802
  8. BETAMETHASONE. [Suspect]
     Active Substance: BETAMETHASONE
     Indication: APPENDICECTOMY
     Route: 065

REACTIONS (1)
  - Urticaria [Recovered/Resolved]

NARRATIVE: CASE EVENT DATE: 20210802
